FAERS Safety Report 17922019 (Version 1)
Quarter: 2020Q2

REPORT INFORMATION
  Report Type: Spontaneous
  Country: DE (occurrence: DE)
  Receive Date: 20200622
  Receipt Date: 20200622
  Transmission Date: 20200714
  Serious: Yes (Hospitalization)
  Sender: FDA-Public Use
  Company Number: DE-DEXPHARM-20200518

PATIENT
  Age: 57 Year
  Sex: Female
  Weight: 82 kg

DRUGS (4)
  1. ZOPICLON [Interacting]
     Active Substance: ZOPICLONE
     Dosage: 0-0-0-1.5
  2. TRIMIPRAMIN [Interacting]
     Active Substance: TRIMIPRAMINE
     Dosage: 100 MG, 0-0-1-0
  3. VENLAFAXINE [Suspect]
     Active Substance: VENLAFAXINE HYDROCHLORIDE
     Dosage: 150 MG, 1-1-0-0, PROLONGED RELEASE CAPSULES
  4. ALPRAZOLAM. [Interacting]
     Active Substance: ALPRAZOLAM
     Dosage: 10 MG, 0.5-0-0.5-0

REACTIONS (8)
  - Paraesthesia [Unknown]
  - Product prescribing error [Unknown]
  - Hypoaesthesia [Unknown]
  - Product monitoring error [Unknown]
  - Labelled drug-drug interaction medication error [Unknown]
  - Dizziness [Unknown]
  - Headache [Unknown]
  - Nausea [Unknown]
